FAERS Safety Report 6635109-5 (Version None)
Quarter: 2010Q1

REPORT INFORMATION
  Report Type: 
  Country: None (occurrence: None)
  Receive Date: 20100315
  Receipt Date: 20100303
  Transmission Date: 20100710
  Serious: Yes (Other)
  Sender: FDA-Public Use
  Company Number: PHMT2007CA01332

PATIENT
  Sex: Male

DRUGS (1)
  1. SANDOSTATIN LAR [Suspect]
     Indication: ACROMEGALY
     Dosage: 30 MG EVERY 4 WEEKS
     Route: 030
     Dates: start: 20060117

REACTIONS (11)
  - BLOOD PRESSURE INCREASED [None]
  - BURNING SENSATION [None]
  - CHONDROPATHY [None]
  - DRUG INEFFECTIVE [None]
  - GOUT [None]
  - HEADACHE [None]
  - HEART RATE INCREASED [None]
  - INSULIN-LIKE GROWTH FACTOR INCREASED [None]
  - LOCALISED INFECTION [None]
  - PAIN IN EXTREMITY [None]
  - RASH [None]
